FAERS Safety Report 9246597 (Version 4)
Quarter: 2013Q2

REPORT INFORMATION
  Report Type: Spontaneous
  Country: IT (occurrence: IT)
  Receive Date: 20130422
  Receipt Date: 20130605
  Transmission Date: 20140414
  Serious: Yes (Life-Threatening)
  Sender: FDA-Public Use
  Company Number: IT-ABBOTT-13X-083-1079456-00

PATIENT
  Age: 49 Year
  Sex: Male

DRUGS (4)
  1. DEPAKIN [Suspect]
     Indication: DRUG ABUSE
     Route: 048
     Dates: start: 20130115, end: 20130115
  2. XANAX [Suspect]
     Indication: DRUG ABUSE
     Dosage: TABLET, EXTENDED RELEASE, 20 DOSAGE FORM
     Route: 048
     Dates: start: 20130115, end: 20130115
  3. METHADONE HYDROCHLORIDE [Suspect]
     Indication: DRUG ABUSE
     Route: 048
     Dates: start: 20130115, end: 20130115
  4. ENTACT [Suspect]
     Indication: DRUG ABUSE
     Route: 048
     Dates: start: 20130115, end: 20130115

REACTIONS (2)
  - Drug abuse [Unknown]
  - Somnolence [Recovering/Resolving]
